FAERS Safety Report 12973272 (Version 2)
Quarter: 2017Q1

REPORT INFORMATION
  Report Type: Report from Study
  Country: None (occurrence: CA)
  Receive Date: 20161124
  Receipt Date: 20170216
  Transmission Date: 20170428
  Serious: Yes (Disabling, Other)
  Sender: FDA-Public Use
  Company Number: CA-ABBVIE-16K-028-1788829-00

PATIENT
  Sex: Male

DRUGS (1)
  1. HUMIRA [Suspect]
     Active Substance: ADALIMUMAB
     Indication: CROHN^S DISEASE
     Route: 058
     Dates: start: 20131108

REACTIONS (3)
  - Headache [Not Recovered/Not Resolved]
  - Depression [Unknown]
  - Incision site ulcer [Not Recovered/Not Resolved]

NARRATIVE: CASE EVENT DATE: 2016
